FAERS Safety Report 18506565 (Version 1)
Quarter: 2020Q4

REPORT INFORMATION
  Report Type: Spontaneous
  Country: US (occurrence: US)
  Receive Date: 20201113
  Receipt Date: 20201113
  Transmission Date: 20210114
  Serious: No
  Sender: FDA-Public Use
  Company Number: None

PATIENT
  Age: 83 Year
  Sex: Male

DRUGS (2)
  1. ENTECAVIR 0.5MG [Concomitant]
     Active Substance: ENTECAVIR
     Dates: start: 20200828, end: 20201020
  2. ENTECAVIR. [Suspect]
     Active Substance: ENTECAVIR
     Indication: HEPATITIS
     Route: 048
     Dates: start: 20200824, end: 20201020

REACTIONS (1)
  - Death [None]

NARRATIVE: CASE EVENT DATE: 20201113
